FAERS Safety Report 24902070 (Version 1)
Quarter: 2025Q1

REPORT INFORMATION
  Report Type: Spontaneous
  Country: CN (occurrence: CN)
  Receive Date: 20250129
  Receipt Date: 20250129
  Transmission Date: 20250409
  Serious: Yes (Hospitalization)
  Sender: AMGEN
  Company Number: CN-AMGEN-CHNSP2025016994

PATIENT
  Age: 75 Year
  Sex: Female
  Weight: 68 kg

DRUGS (5)
  1. REPATHA [Suspect]
     Active Substance: EVOLOCUMAB
     Indication: Cerebral infarction
     Route: 058
     Dates: start: 20250107, end: 20250107
  2. BUTYLPHTHALIDE [Suspect]
     Active Substance: BUTYLPHTHALIDE
     Indication: Product used for unknown indication
     Route: 040
     Dates: start: 20250109, end: 20250114
  3. DEXBORNEOL\EDARAVONE [Suspect]
     Active Substance: DEXBORNEOL\EDARAVONE
     Indication: Product used for unknown indication
     Route: 040
     Dates: start: 20250109, end: 20250114
  4. CEFOPERAZONE SODIUM\SULBACTAM SODIUM [Suspect]
     Active Substance: CEFOPERAZONE SODIUM\SULBACTAM SODIUM
     Indication: Product used for unknown indication
     Route: 040
     Dates: start: 20250111, end: 20250114
  5. PANTOPRAZOLE SODIUM [Suspect]
     Active Substance: PANTOPRAZOLE SODIUM
     Indication: Product used for unknown indication
     Route: 040
     Dates: start: 20250109, end: 20250114

REACTIONS (1)
  - Rash pustular [Recovering/Resolving]

NARRATIVE: CASE EVENT DATE: 20250111
